FAERS Safety Report 5472230-1 (Version None)
Quarter: 2007Q3

REPORT INFORMATION
  Report Type: 
  Country: None (occurrence: None)
  Receive Date: 20070926
  Receipt Date: 20070918
  Transmission Date: 20080115
  Serious: Yes (Other)
  Sender: FDA-Public Use
  Company Number: CHPA2007US09826

PATIENT
  Age: 32 Year
  Sex: Male
  Weight: 90.7 kg

DRUGS (2)
  1. NODOZ (NCH)(CAFFEINE) CAPLET [Suspect]
     Indication: SOMNOLENCE
     Dosage: 600 MG, ONCE/SINGLE AROUND 06:00 P.M., ORAL
     Route: 048
     Dates: start: 20070917, end: 20070917
  2. ETHANOL (ETHANOL) [Suspect]

REACTIONS (8)
  - ABNORMAL BEHAVIOUR [None]
  - AGGRESSION [None]
  - ALCOHOL USE [None]
  - AMNESIA [None]
  - INCORRECT DOSE ADMINISTERED [None]
  - LOSS OF CONSCIOUSNESS [None]
  - PHYSICAL ASSAULT [None]
  - SELF INJURIOUS BEHAVIOUR [None]
